FAERS Safety Report 6547745-5 (Version None)
Quarter: 2010Q1

REPORT INFORMATION
  Report Type: 
  Country: None (occurrence: None)
  Receive Date: 20100123
  Receipt Date: 20100119
  Transmission Date: 20100710
  Serious: Yes (Death, Life-Threatening, Hospitalization, Disabling, Other)
  Sender: FDA-Public Use
  Company Number: GB-JNJFOC-20080405632

PATIENT
  Age: 61 Year
  Sex: Male
  Weight: 74.5 kg

DRUGS (8)
  1. TOPIRAMATE [Suspect]
     Indication: CONVULSION
     Route: 048
  2. TOPIRAMATE [Suspect]
     Route: 048
  3. TEMOZOLOMIDE [Suspect]
     Indication: GLIOBLASTOMA MULTIFORME
     Route: 048
  4. ALLOPURINOL [Concomitant]
     Indication: GOUT
     Route: 048
  5. DEXAMETHASONE [Concomitant]
     Indication: GLIOBLASTOMA
     Route: 048
  6. FILGRASTIM [Concomitant]
     Indication: NEUTROPENIA
     Route: 058
  7. NEORECORMON [Concomitant]
     Indication: ANAEMIA
     Route: 058
  8. LANSOPRAZOLE [Concomitant]
     Indication: DRUG USE FOR UNKNOWN INDICATION
     Route: 065

REACTIONS (6)
  - BONE MARROW FAILURE [None]
  - CONVULSION [None]
  - FEBRILE NEUTROPENIA [None]
  - HAEMORRHAGE [None]
  - PANCYTOPENIA [None]
  - PETECHIAE [None]
